FAERS Safety Report 5492125-7 (Version None)
Quarter: 2007Q4

REPORT INFORMATION
  Report Type: 
  Country: None (occurrence: None)
  Receive Date: 20071022
  Receipt Date: 20071018
  Transmission Date: 20080405
  Serious: Yes (Hospitalization)
  Sender: FDA-Public Use
  Company Number: IT-WYE-H00727607

PATIENT
  Sex: Male

DRUGS (2)
  1. CEFIXORAL [Suspect]
     Indication: CYSTITIS
     Route: 048
     Dates: start: 20071010, end: 20071010
  2. CISTALGAN [Concomitant]

REACTIONS (3)
  - FACE OEDEMA [None]
  - OEDEMA PERIPHERAL [None]
  - URTICARIA [None]
